FAERS Safety Report 12082912 (Version 1)
Quarter: 2016Q1

REPORT INFORMATION
  Report Type: Spontaneous
  Country: US (occurrence: None)
  Receive Date: 20160216
  Receipt Date: 20160216
  Transmission Date: 20160526
  Serious: No
  Sender: FDA-Public Use
  Company Number: None

PATIENT
  Age: 17 Year
  Sex: Female
  Weight: 75.75 kg

DRUGS (1)
  1. ARIPIPRAZOLE 10 MG [Suspect]
     Active Substance: ARIPIPRAZOLE
     Indication: BIPOLAR DISORDER
     Dosage: APPROXIMATELY 2 MONTHS 10MG 1 DAILY ORAL
     Route: 048

REACTIONS (2)
  - Blood lactic acid increased [None]
  - Weight increased [None]

NARRATIVE: CASE EVENT DATE: 20140101
